FAERS Safety Report 19243382 (Version 3)
Quarter: 2021Q2

REPORT INFORMATION
  Report Type: Report from Study
  Country: AR (occurrence: AR)
  Receive Date: 20210511
  Receipt Date: 20210525
  Transmission Date: 20210717
  Serious: Yes (Life-Threatening, Hospitalization, Other)
  Sender: FDA-Public Use
  Company Number: NVSC2021AR103241

PATIENT
  Sex: Female

DRUGS (13)
  1. ULTIBRO BREEZHALER [Suspect]
     Active Substance: GLYCOPYRRONIUM\INDACATEROL
     Indication: CHRONIC OBSTRUCTIVE PULMONARY DISEASE
     Dosage: 1 DF, QD, (1 APPLICATION, APPROXIMATELY 6 YEARS AGO)
     Route: 065
  2. ULTIBRO BREEZHALER [Suspect]
     Active Substance: GLYCOPYRRONIUM\INDACATEROL
     Dosage: 1 DF, QD, (1 APPLICATION, APPROXIMATELY 6 YEARS AGO)
     Route: 065
  3. RIVOTRIL [Concomitant]
     Active Substance: CLONAZEPAM
     Indication: PRODUCT USED FOR UNKNOWN INDICATION
     Dosage: 1 DF, QD
     Route: 065
  4. ULTIBRO BREEZHALER [Suspect]
     Active Substance: GLYCOPYRRONIUM\INDACATEROL
     Dosage: UNK
     Route: 065
  5. SINTROM [Concomitant]
     Active Substance: ACENOCOUMAROL
     Indication: BLOOD DISORDER
     Dosage: 0.25 DF
     Route: 065
  6. ANEMIDOX [Concomitant]
     Indication: PRODUCT USED FOR UNKNOWN INDICATION
     Dosage: UNK
     Route: 065
  7. OMEPRAZOLE. [Concomitant]
     Active Substance: OMEPRAZOLE
     Indication: PRODUCT USED FOR UNKNOWN INDICATION
     Dosage: 1 DF, QD
     Route: 065
  8. GLIOTEN [Concomitant]
     Indication: PRODUCT USED FOR UNKNOWN INDICATION
     Dosage: 1 DF, QD
     Route: 065
  9. SINTROM [Concomitant]
     Active Substance: ACENOCOUMAROL
     Dosage: 0.5 DF, QW
     Route: 065
  10. CLODREL [Concomitant]
     Indication: BLOOD DISORDER
     Dosage: 1 DF, QD
     Route: 065
  11. ATLANSIL [Concomitant]
     Active Substance: AMIODARONE
     Indication: PRODUCT USED FOR UNKNOWN INDICATION
     Dosage: 1 DF, QD
     Route: 065
  12. RIVOTRIL [Concomitant]
     Active Substance: CLONAZEPAM
     Dosage: 0.5 MG, QD
     Route: 065
  13. ATROVENT [Concomitant]
     Active Substance: IPRATROPIUM BROMIDE
     Indication: PRODUCT USED FOR UNKNOWN INDICATION
     Dosage: UNK
     Route: 065

REACTIONS (24)
  - Cardiac valve disease [Unknown]
  - Dyspnoea [Unknown]
  - Pallor [Unknown]
  - Cold sweat [Unknown]
  - Atrioventricular block [Unknown]
  - Gait disturbance [Unknown]
  - Angina pectoris [Unknown]
  - Musculoskeletal pain [Unknown]
  - Myocardial infarction [Unknown]
  - Arrhythmia [Unknown]
  - Agitation [Unknown]
  - Cognitive disorder [Unknown]
  - Chest discomfort [Unknown]
  - Cardiac disorder [Unknown]
  - Deafness [Unknown]
  - Pain [Not Recovered/Not Resolved]
  - Fatigue [Unknown]
  - Choking [Unknown]
  - Renal disorder [Unknown]
  - Oedema peripheral [Unknown]
  - Palpitations [Unknown]
  - Anxiety [Unknown]
  - Urine output decreased [Unknown]
  - Restlessness [Unknown]
